FAERS Safety Report 11773963 (Version 2)
Quarter: 2016Q1

REPORT INFORMATION
  Report Type: Report from Study
  Country: US (occurrence: US)
  Receive Date: 20151124
  Receipt Date: 20160129
  Transmission Date: 20160525
  Serious: No
  Sender: FDA-Public Use
  Company Number: PHEH2015US023775

PATIENT
  Sex: Female

DRUGS (1)
  1. COSENTYX [Suspect]
     Active Substance: SECUKINUMAB
     Indication: PSORIASIS
     Dosage: 300 MG, QW
     Route: 058

REACTIONS (6)
  - Inflammation [Unknown]
  - Peripheral swelling [Unknown]
  - Influenza like illness [Unknown]
  - Feeling of body temperature change [Unknown]
  - Pyrexia [Unknown]
  - Malaise [Unknown]
